FAERS Safety Report 15208071 (Version 1)
Quarter: 2018Q3

REPORT INFORMATION
  Report Type: Spontaneous
  Country: US (occurrence: US)
  Receive Date: 20180628
  Receipt Date: 20180628
  Transmission Date: 20181010
  Serious: Yes (Disabling)
  Sender: FDA-Public Use
  Company Number: None

PATIENT
  Age: 49 Year
  Sex: Female
  Weight: 72 kg

DRUGS (2)
  1. CHOLESTYRAMINE. [Concomitant]
     Active Substance: CHOLESTYRAMINE
  2. LEFLUNOMIDE. [Suspect]
     Active Substance: LEFLUNOMIDE
     Indication: RHEUMATOID ARTHRITIS
     Dosage: ?          QUANTITY:1 DF DOSAGE FORM;?
     Route: 048
     Dates: start: 20180528, end: 20180618

REACTIONS (8)
  - Malaise [None]
  - Decreased appetite [None]
  - Nausea [None]
  - Abdominal pain [None]
  - Inflammation [None]
  - Pancreatitis [None]
  - Constipation [None]
  - Drug dose omission [None]

NARRATIVE: CASE EVENT DATE: 20180618
